FAERS Safety Report 26034451 (Version 2)
Quarter: 2025Q4

REPORT INFORMATION
  Report Type: Spontaneous
  Country: US (occurrence: US)
  Receive Date: 20251112
  Receipt Date: 20251118
  Transmission Date: 20260118
  Serious: No
  Sender: PFIZER
  Company Number: US-PFIZER INC-202500221240

PATIENT
  Age: 71 Year
  Sex: Female

DRUGS (1)
  1. NURTEC ODT [Suspect]
     Active Substance: RIMEGEPANT SULFATE
     Dosage: UNK
     Dates: start: 2022

REACTIONS (3)
  - Hypertension [Not Recovered/Not Resolved]
  - Malaise [Unknown]
  - Discomfort [Unknown]

NARRATIVE: CASE EVENT DATE: 20251101
